FAERS Safety Report 9023766 (Version 1)
Quarter: 2013Q1

REPORT INFORMATION
  Report Type: Spontaneous
  Country: DE (occurrence: DE)
  Receive Date: 20130121
  Receipt Date: 20130121
  Transmission Date: 20140127
  Serious: Yes (Other)
  Sender: FDA-Public Use
  Company Number: DE-MYLANLABS-2013S1000536

PATIENT
  Age: 65 Year
  Sex: Male

DRUGS (2)
  1. FLUOROURACIL [Suspect]
     Indication: NASOPHARYNGEAL CANCER
     Route: 065
  2. MITOMYCIN [Suspect]
     Indication: NASOPHARYNGEAL CANCER
     Route: 065

REACTIONS (3)
  - Dysphagia [Not Recovered/Not Resolved]
  - Pneumonia aspiration [Recovered/Resolved]
  - Dry mouth [Unknown]
